FAERS Safety Report 24036459 (Version 1)
Quarter: 2024Q2

REPORT INFORMATION
  Report Type: Spontaneous
  Country: US (occurrence: None)
  Receive Date: 20240630
  Receipt Date: 20240630
  Transmission Date: 20240716
  Serious: Yes (Life-Threatening, Hospitalization)
  Sender: FDA-Public Use
  Company Number: None

PATIENT
  Age: 29 Year
  Sex: Male
  Weight: 96.75 kg

DRUGS (4)
  1. TIANEPTINE [Suspect]
     Active Substance: TIANEPTINE
     Indication: Feeling of relaxation
     Dates: start: 20240622, end: 20240622
  2. TIANEPTINE [Suspect]
     Active Substance: TIANEPTINE
     Indication: Stress
  3. ZOLOFT [Concomitant]
     Active Substance: SERTRALINE HYDROCHLORIDE
  4. aderol [Concomitant]

REACTIONS (7)
  - Intentional product misuse [None]
  - Intentional overdose [None]
  - Seizure [None]
  - Product taste abnormal [None]
  - Toxicity to various agents [None]
  - Near death experience [None]
  - Legal problem [None]

NARRATIVE: CASE EVENT DATE: 20240622
